FAERS Safety Report 19236098 (Version 6)
Quarter: 2021Q3

REPORT INFORMATION
  Report Type: Report from Study
  Country: US (occurrence: US)
  Receive Date: 20210510
  Receipt Date: 20210823
  Transmission Date: 20211014
  Serious: Yes (Other)
  Sender: FDA-Public Use
  Company Number: NVSC2021US097092

PATIENT
  Age: 50 Year
  Sex: Female

DRUGS (2)
  1. KESIMPTA [Suspect]
     Active Substance: OFATUMUMAB
     Indication: MULTIPLE SCLEROSIS
     Dosage: 20 MG
     Route: 058
     Dates: start: 20210426
  2. KESIMPTA [Suspect]
     Active Substance: OFATUMUMAB
     Dosage: 20 MG, QW
     Route: 058
     Dates: start: 20210427

REACTIONS (10)
  - Accidental exposure to product [Unknown]
  - Pain [Recovering/Resolving]
  - Blood glucose decreased [Recovered/Resolved]
  - Urinary tract infection [Recovered/Resolved]
  - Product quality issue [Recovered/Resolved]
  - Abdominal pain upper [Recovering/Resolving]
  - Delusion [Recovered/Resolved]
  - Injection site pain [Recovering/Resolving]
  - Wrong technique in product usage process [Recovered/Resolved]
  - Dehydration [Recovered/Resolved]

NARRATIVE: CASE EVENT DATE: 20210426
